FAERS Safety Report 9639050 (Version 3)
Quarter: 2014Q1

REPORT INFORMATION
  Report Type: Spontaneous
  Country: US (occurrence: US)
  Receive Date: 20131022
  Receipt Date: 20140130
  Transmission Date: 20141002
  Serious: No
  Sender: FDA-Public Use
  Company Number: US-009507513-1310USA007173

PATIENT
  Sex: Female

DRUGS (1)
  1. COPPERTONE SPORT DRY LOTION SPF-30 [Suspect]
     Indication: PRODUCT USED FOR UNKNOWN INDICATION
     Dosage: UNK, UNKNOWN
     Route: 061

REACTIONS (7)
  - Ocular hyperaemia [Not Recovered/Not Resolved]
  - Deposit eye [Unknown]
  - Vision blurred [Not Recovered/Not Resolved]
  - Ocular discomfort [Not Recovered/Not Resolved]
  - Eye irritation [Unknown]
  - Eye discharge [Not Recovered/Not Resolved]
  - Accidental exposure to product [Unknown]
